FAERS Safety Report 7730719-6 (Version None)
Quarter: 2011Q3

REPORT INFORMATION
  Report Type: 
  Country: None (occurrence: None)
  Receive Date: 20110906
  Receipt Date: 20100812
  Transmission Date: 20111222
  Serious: Yes (Other)
  Sender: FDA-Public Use
  Company Number: JP-GLAXOSMITHKLINE-B0669998A

PATIENT
  Sex: Female

DRUGS (5)
  1. NORVIR [Suspect]
     Indication: HIV INFECTION
     Dosage: 100MG PER DAY
     Route: 048
     Dates: start: 20090730, end: 20100101
  2. EPIVIR [Concomitant]
     Indication: HIV INFECTION
     Dosage: 300MG PER DAY
     Route: 048
     Dates: start: 20090730
  3. VIREAD [Concomitant]
     Indication: HIV INFECTION
     Dosage: 300MG PER DAY
     Route: 048
     Dates: start: 20090730
  4. REYATAZ [Concomitant]
     Indication: HIV INFECTION
     Dosage: 300MG PER DAY
     Route: 048
     Dates: start: 20090730, end: 20100101
  5. FLUTICASONE PROPIONATE [Suspect]
     Indication: ASTHMA
     Dosage: 2IUAX PER DAY
     Route: 055
     Dates: start: 20090730

REACTIONS (2)
  - DRUG INTERACTION [None]
  - CUSHING'S SYNDROME [None]
